FAERS Safety Report 22366086 (Version 1)
Quarter: 2023Q2

REPORT INFORMATION
  Report Type: Spontaneous
  Country: US (occurrence: None)
  Receive Date: 20230524
  Receipt Date: 20230524
  Transmission Date: 20230721
  Serious: No
  Sender: FDA-Public Use
  Company Number: None

PATIENT
  Sex: Female

DRUGS (1)
  1. AJOVY [Suspect]
     Active Substance: FREMANEZUMAB-VFRM
     Dosage: FREQUENCY : MONTHLY;?
     Route: 058
     Dates: start: 20230420

REACTIONS (2)
  - Drug ineffective [None]
  - Therapy cessation [None]
